FAERS Safety Report 10648071 (Version 2)
Quarter: 2014Q4

REPORT INFORMATION
  Report Type: Spontaneous
  Country: US (occurrence: None)
  Receive Date: 20141210
  Receipt Date: 20141222
  Transmission Date: 20150529
  Serious: Yes (Hospitalization)
  Sender: FDA-Public Use
  Company Number: CIO14070322

PATIENT
  Age: 42 Year
  Sex: Female

DRUGS (7)
  1. DAYQUIL SEVERE COLD AND FLU [Suspect]
     Active Substance: ACETAMINOPHEN\DEXTROMETHORPHAN HYDROBROMIDE\GUAIFENESIN\PHENYLEPHRINE HYDROCHLORIDE
     Indication: NASOPHARYNGITIS
     Route: 048
     Dates: start: 20141014
  2. XANAX [Concomitant]
     Active Substance: ALPRAZOLAM
  3. ROBITUSSIN (GUAIFENESIN) [Suspect]
     Active Substance: GUAIFENESIN
     Route: 048
  4. PERCOCET /00867901/ (OXYCODONE HYDROCHLORIDE, PARACETAMOL) [Concomitant]
  5. INSULIN [Concomitant]
     Active Substance: INSULIN NOS
  6. VICKS NYQUIL SEVERE COLD AND FLU [Suspect]
     Active Substance: ACETAMINOPHEN\DEXTROMETHORPHAN HYDROBROMIDE\DOXYLAMINE SUCCINATE\PHENYLEPHRINE
     Indication: NASOPHARYNGITIS
     Route: 048
     Dates: start: 20141014
  7. COUMADIN [Suspect]
     Active Substance: WARFARIN SODIUM

REACTIONS (18)
  - Stomatitis [None]
  - Pulmonary congestion [None]
  - Fatigue [None]
  - Pain [None]
  - Ketoacidosis [None]
  - Abdominal pain upper [None]
  - Somnolence [None]
  - Malaise [None]
  - Vomiting [None]
  - Respiratory tract congestion [None]
  - Gastric disorder [None]
  - Abdominal discomfort [None]
  - Haematemesis [None]
  - Condition aggravated [None]
  - Pyrexia [None]
  - Dysphonia [None]
  - Cough [None]
  - Drug ineffective [None]

NARRATIVE: CASE EVENT DATE: 201410
